FAERS Safety Report 24223313 (Version 1)
Quarter: 2024Q3

REPORT INFORMATION
  Report Type: Spontaneous
  Country: US (occurrence: US)
  Receive Date: 20240819
  Receipt Date: 20240819
  Transmission Date: 20241017
  Serious: No
  Sender: ANI
  Company Number: US-ANIPHARMA-2023-US-034345

PATIENT
  Sex: Female

DRUGS (11)
  1. ANASTROZOLE [Suspect]
     Active Substance: ANASTROZOLE
     Indication: Product used for unknown indication
     Route: 048
  2. CETIRIZINE HCL [Concomitant]
     Active Substance: CETIRIZINE HYDROCHLORIDE
     Route: 048
  3. VITAMINS [Concomitant]
     Active Substance: VITAMINS
     Route: 048
  4. IBRANCE [Suspect]
     Active Substance: PALBOCICLIB
     Dosage: 125 MG 1 TABLET DAILY FOR 21 DAYS/7 DAYS OFF
     Route: 048
     Dates: start: 202308
  5. VALSARTAN [Concomitant]
     Active Substance: VALSARTAN
     Route: 048
  6. ROSUVASTATIN CALCIUM [Concomitant]
     Active Substance: ROSUVASTATIN CALCIUM
     Route: 048
  7. LATANOPROST [Concomitant]
     Active Substance: LATANOPROST
  8. Flonase Allergy Relief Nasal [Concomitant]
     Route: 045
  9. TRULICITY [Concomitant]
     Active Substance: DULAGLUTIDE
     Route: 058
  10. TIMOLOL MALEATE [Concomitant]
     Active Substance: TIMOLOL MALEATE
  11. VITAMIN D [Concomitant]
     Active Substance: VITAMIN D NOS
     Route: 048

REACTIONS (2)
  - Fatigue [Unknown]
  - Blood glucose increased [Unknown]
